FAERS Safety Report 10112399 (Version 1)
Quarter: 2014Q2

REPORT INFORMATION
  Report Type: Spontaneous
  Country: US (occurrence: US)
  Receive Date: 20140425
  Receipt Date: 20140425
  Transmission Date: 20141212
  Serious: No
  Sender: FDA-Public Use
  Company Number: US-009507513-1403USA014370

PATIENT
  Age: 7 Year
  Sex: Male
  Weight: 24.36 kg

DRUGS (5)
  1. CLARITIN REDITABS [Suspect]
     Indication: HYPERSENSITIVITY
     Dosage: 10 MG, ONCE
     Route: 048
     Dates: start: 20120320
  2. CLARITIN REDITABS [Suspect]
     Dosage: 10 MG, ONCE
     Route: 048
     Dates: start: 20120320
  3. CLARITIN REDITABS [Suspect]
     Dosage: UNK, HS
     Route: 048
  4. ALBUTEROL [Concomitant]
     Indication: PRODUCT USED FOR UNKNOWN INDICATION
     Dosage: UNK, UNKNOWN
  5. PULMICORT [Concomitant]
     Indication: PRODUCT USED FOR UNKNOWN INDICATION
     Dosage: UNK, UNKNOWN

REACTIONS (1)
  - Overdose [Recovering/Resolving]
